FAERS Safety Report 4627996-7 (Version None)
Quarter: 2005Q2

REPORT INFORMATION
  Report Type: 
  Country: None (occurrence: None)
  Receive Date: 20050406
  Receipt Date: 20050303
  Transmission Date: 20051028
  Serious: Yes (Other)
  Sender: FDA-Public Use
  Company Number: JP-ROCHE-397898

PATIENT
  Age: 5 Month
  Sex: Male

DRUGS (1)
  1. TAMIFLU [Suspect]
     Route: 048
     Dates: start: 20050301, end: 20050307

REACTIONS (5)
  - FONTANELLE BULGING [None]
  - IRRITABILITY [None]
  - NEUROLOGICAL SYMPTOM [None]
  - SOMNOLENCE [None]
  - VOMITING [None]
